FAERS Safety Report 8015897-6 (Version None)
Quarter: 2011Q4

REPORT INFORMATION
  Report Type: 
  Country: None (occurrence: None)
  Receive Date: 20111230
  Receipt Date: 20111219
  Transmission Date: 20120403
  Serious: Yes (Death)
  Sender: FDA-Public Use
  Company Number: US-PFIZER INC-2011311674

PATIENT
  Age: 29 Year
  Sex: Male

DRUGS (2)
  1. ETHANOL [Suspect]
  2. MORPHINE SULFATE [Suspect]

REACTIONS (2)
  - DEATH [None]
  - CARDIO-RESPIRATORY ARREST [None]
